FAERS Safety Report 25544252 (Version 1)
Quarter: 2025Q3

REPORT INFORMATION
  Report Type: Spontaneous
  Country: US (occurrence: None)
  Receive Date: 20250711
  Receipt Date: 20250711
  Transmission Date: 20251020
  Serious: No
  Sender: FDA-CTU
  Company Number: None

PATIENT

DRUGS (1)
  1. RETEVMO [Suspect]
     Active Substance: SELPERCATINIB

REACTIONS (3)
  - Pneumonia [None]
  - Decreased appetite [None]
  - Depression [None]
